FAERS Safety Report 20943206 (Version 1)
Quarter: 2022Q2

REPORT INFORMATION
  Report Type: Spontaneous
  Country: SI (occurrence: SI)
  Receive Date: 20220610
  Receipt Date: 20220610
  Transmission Date: 20220721
  Serious: Yes (Other)
  Sender: FDA-Public Use
  Company Number: None

PATIENT
  Age: 36 Year
  Sex: Female

DRUGS (6)
  1. HYDROCORTISONE [Suspect]
     Active Substance: HYDROCORTISONE
     Indication: Adrenal insufficiency
     Dosage: UNK
     Route: 065
  2. HYDROCORTISONE [Suspect]
     Active Substance: HYDROCORTISONE
     Dosage: UNK
     Route: 065
  3. DEXAMETHASONE [Suspect]
     Active Substance: DEXAMETHASONE
     Indication: Plasma cell mastitis
     Dosage: 8 MILLIGRAM DAILY
     Route: 048
  4. METHYLPREDNISOLONE [Suspect]
     Active Substance: METHYLPREDNISOLONE
     Indication: Pyoderma gangrenosum
     Dosage: 48 MILLIGRAM/DAY
     Route: 048
  5. METHYLPREDNISOLONE [Suspect]
     Active Substance: METHYLPREDNISOLONE
     Dosage: UNK, SLOW TAPERING
     Route: 048
  6. BETAMETHASONE\GENTAMICIN [Suspect]
     Active Substance: BETAMETHASONE\GENTAMICIN
     Indication: Pyoderma gangrenosum
     Dosage: UNK
     Route: 061

REACTIONS (4)
  - Weight increased [Recovered/Resolved]
  - Condition aggravated [Recovered/Resolved]
  - Panic disorder [Recovered/Resolved]
  - Hypertension [Recovered/Resolved]
